FAERS Safety Report 15402022 (Version 1)
Quarter: 2018Q3

REPORT INFORMATION
  Report Type: Spontaneous
  Country: US (occurrence: US)
  Receive Date: 20180919
  Receipt Date: 20180919
  Transmission Date: 20181010
  Serious: Yes (Other)
  Sender: FDA-Public Use
  Company Number: US-COOPERSURGICAL, INC.-US-2018CPS033050

PATIENT

DRUGS (1)
  1. PARAGARD T 380A [Suspect]
     Active Substance: COPPER
     Indication: CONTRACEPTION
     Dosage: UNK
     Route: 015
     Dates: start: 20150626

REACTIONS (4)
  - Uterine polyp [Not Recovered/Not Resolved]
  - Endometrial hyperplasia [Not Recovered/Not Resolved]
  - Menorrhagia [Recovered/Resolved]
  - Endometrial thickening [Not Recovered/Not Resolved]

NARRATIVE: CASE EVENT DATE: 201807
